FAERS Safety Report 12270662 (Version 1)
Quarter: 2016Q2

REPORT INFORMATION
  Report Type: Spontaneous
  Country: US (occurrence: US)
  Receive Date: 20160415
  Receipt Date: 20160415
  Transmission Date: 20160815
  Serious: No
  Sender: FDA-Public Use
  Company Number: US-PFIZER INC-2016212896

PATIENT
  Age: 52 Year
  Sex: Male

DRUGS (3)
  1. SODIUM SULAMYD [Suspect]
     Active Substance: SULFACETAMIDE SODIUM
  2. AZULFIDINE [Suspect]
     Active Substance: SULFASALAZINE
     Dosage: UNK
     Route: 065
  3. BLEPH-10 [Suspect]
     Active Substance: SULFACETAMIDE SODIUM

REACTIONS (1)
  - Drug hypersensitivity [Unknown]
